FAERS Safety Report 24175715 (Version 1)
Quarter: 2024Q3

REPORT INFORMATION
  Report Type: Spontaneous
  Country: JP (occurrence: JP)
  Receive Date: 20240805
  Receipt Date: 20240805
  Transmission Date: 20241017
  Serious: Yes (Other)
  Sender: SUNOVION
  Company Number: JP-SMPA-2024SMP011338

PATIENT

DRUGS (4)
  1. LATUDA [Suspect]
     Active Substance: LURASIDONE HYDROCHLORIDE
     Indication: Schizophrenia
     Dosage: 20 MG, QD
     Route: 048
  2. LATUDA [Suspect]
     Active Substance: LURASIDONE HYDROCHLORIDE
     Dosage: 60 MG, QD
     Route: 048
  3. BLONANSERIN [Suspect]
     Active Substance: BLONANSERIN
     Indication: Product used for unknown indication
     Dosage: UNK
     Route: 065
  4. BLONANSERIN [Suspect]
     Active Substance: BLONANSERIN
     Dosage: 24 MG, QD
     Route: 065

REACTIONS (9)
  - Neuroleptic malignant syndrome [Not Recovered/Not Resolved]
  - Neuroleptic malignant syndrome [Unknown]
  - Akinesia [Unknown]
  - Tension [Unknown]
  - Muscle rigidity [Unknown]
  - Taciturnity [Unknown]
  - Muscle rigidity [Unknown]
  - Stupor [Unknown]
  - Prescribed underdose [Unknown]

NARRATIVE: CASE EVENT DATE: 20210101
